FAERS Safety Report 4473490-6 (Version None)
Quarter: 2004Q3

REPORT INFORMATION
  Report Type: 
  Country: None (occurrence: None)
  Receive Date: 20040907
  Receipt Date: 20040729
  Transmission Date: 20050211
  Serious: Yes (Other)
  Sender: FDA-Public Use
  Company Number: USA040774011

PATIENT
  Age: 70 Year
  Sex: Male

DRUGS (5)
  1. ALIMTA [Suspect]
     Indication: MESOTHELIOMA
  2. CISPLATIN [Concomitant]
  3. EMEND [Concomitant]
  4. VITAMIN B-12 [Concomitant]
  5. FOLIC ACID [Concomitant]

REACTIONS (5)
  - BLOOD ELECTROLYTES ABNORMAL [None]
  - NAUSEA [None]
  - NEUTROPENIA [None]
  - THROMBOCYTOPENIA [None]
  - VOMITING [None]
